FAERS Safety Report 5752831-3 (Version None)
Quarter: 2008Q2

REPORT INFORMATION
  Report Type: 
  Country: None (occurrence: None)
  Receive Date: 20080529
  Receipt Date: 20080523
  Transmission Date: 20081010
  Serious: Yes (Other)
  Sender: FDA-Public Use
  Company Number: US-GILEAD-2008-0016577

PATIENT
  Sex: Male
  Weight: 67.192 kg

DRUGS (14)
  1. LETAIRIS [Suspect]
     Indication: PULMONARY ARTERIAL HYPERTENSION
     Route: 048
     Dates: start: 20080509
  2. COUMADIN [Concomitant]
     Route: 048
  3. DILTIAZEM [Concomitant]
     Route: 048
  4. PRAVASTATIN SODIUM [Concomitant]
     Route: 048
  5. GABAPENTIN [Concomitant]
     Route: 048
  6. ALBUTEROL [Concomitant]
     Route: 055
  7. ADVAIR DISKUS 100/50 [Concomitant]
     Dosage: 100/50
     Route: 055
  8. OXYBUTYNIN CHLORIDE [Concomitant]
     Route: 048
  9. PRILOSEC [Concomitant]
     Route: 048
  10. MECLIZINE [Concomitant]
     Route: 048
  11. FLUOXETINE HCL [Concomitant]
     Route: 048
  12. CALCIUM +D [Concomitant]
     Route: 048
  13. MULTIVITAMIN [Concomitant]
     Route: 048
  14. EPIDRIN [Concomitant]
     Route: 048

REACTIONS (2)
  - DIPLOPIA [None]
  - NAUSEA [None]
